FAERS Safety Report 13680254 (Version 2)
Quarter: 2017Q3

REPORT INFORMATION
  Report Type: Spontaneous
  Country: US (occurrence: US)
  Receive Date: 20170622
  Receipt Date: 20170824
  Transmission Date: 20171127
  Serious: Yes (Other)
  Sender: FDA-Public Use
  Company Number: US-JAZZ-2017-US-008000

PATIENT
  Age: 56 Year
  Sex: Male

DRUGS (12)
  1. PRIALT [Suspect]
     Active Substance: ZICONOTIDE ACETATE
     Dosage: .208?G
     Route: 037
     Dates: start: 20170206, end: 2017
  2. PRIALT [Suspect]
     Active Substance: ZICONOTIDE ACETATE
     Dosage: .291?G, QH
     Route: 037
     Dates: start: 20170220, end: 2017
  3. PRIALT [Suspect]
     Active Substance: ZICONOTIDE ACETATE
     Dosage: .37?G, QH
     Route: 037
     Dates: start: 20170316, end: 2017
  4. PRIALT [Suspect]
     Active Substance: ZICONOTIDE ACETATE
     Dosage: .083?G, QH
     Route: 037
     Dates: start: 20170124, end: 2017
  5. ASPIRIN                            /00002701/ [Suspect]
     Active Substance: ASPIRIN
     Indication: PRODUCT USED FOR UNKNOWN INDICATION
  6. PRIALT [Suspect]
     Active Substance: ZICONOTIDE ACETATE
     Indication: PRODUCT USED FOR UNKNOWN INDICATION
     Dosage: UNK ?G, QH
     Route: 037
  7. PRIALT [Suspect]
     Active Substance: ZICONOTIDE ACETATE
     Dosage: UNK ?G, UNK
     Route: 037
     Dates: start: 20170413
  8. PRIALT [Suspect]
     Active Substance: ZICONOTIDE ACETATE
     Dosage: .145?G, QH
     Route: 037
     Dates: start: 20170131, end: 2017
  9. GABAPENTIN. [Concomitant]
     Active Substance: GABAPENTIN
     Indication: PRODUCT USED FOR UNKNOWN INDICATION
  10. ZYRTEC [Concomitant]
     Active Substance: CETIRIZINE HYDROCHLORIDE
     Indication: PRODUCT USED FOR UNKNOWN INDICATION
  11. PRIALT [Suspect]
     Active Substance: ZICONOTIDE ACETATE
     Dosage: UNKNOWN DOSE DECREASED
     Route: 037
     Dates: end: 20170510
  12. VENLAFAXINE [Concomitant]
     Active Substance: VENLAFAXINE HYDROCHLORIDE
     Indication: PRODUCT USED FOR UNKNOWN INDICATION

REACTIONS (2)
  - Subdural haematoma [Recovered/Resolved]
  - Dizziness [Recovered/Resolved]

NARRATIVE: CASE EVENT DATE: 20170418
